FAERS Safety Report 5201439-7 (Version None)
Quarter: 2006Q4

REPORT INFORMATION
  Report Type: 
  Country: None (occurrence: None)
  Receive Date: 20061004
  Receipt Date: 20060616
  Transmission Date: 20070319
  Serious: No
  Sender: FDA-Public Use
  Company Number: US200604001624

PATIENT
  Age: 34 Year
  Sex: Female

DRUGS (3)
  1. ALIMTA [Suspect]
     Indication: MESOTHELIOMA MALIGNANT
  2. CYANOCOBALAMIN [Concomitant]
  3. FOLIC ACID [Concomitant]

REACTIONS (1)
  - POSITIVE ROMBERGISM [None]
